FAERS Safety Report 23703268 (Version 1)
Quarter: 2024Q2

REPORT INFORMATION
  Report Type: Spontaneous
  Country: US (occurrence: None)
  Receive Date: 20240403
  Receipt Date: 20240403
  Transmission Date: 20240716
  Serious: No
  Sender: FDA-Public Use
  Company Number: None

PATIENT
  Sex: Female

DRUGS (1)
  1. ZARXIO [Suspect]
     Active Substance: FILGRASTIM-SNDZ
     Indication: Breast cancer female
     Dosage: FREQUENCY: ADMINISTER DAILY TIMES 2 DOSES STARTING 24 HOURS AFTER DAY 1 AND 8 OF CHEMOTHERAPY FOR A
     Route: 058
     Dates: start: 202403

REACTIONS (6)
  - Arthralgia [None]
  - Asthenia [None]
  - Chest pain [None]
  - Hypophagia [None]
  - Mobility decreased [None]
  - Dehydration [None]
